FAERS Safety Report 5672757-3 (Version None)
Quarter: 2008Q1

REPORT INFORMATION
  Report Type: 
  Country: None (occurrence: None)
  Receive Date: 20080319
  Receipt Date: 20070521
  Transmission Date: 20080703
  Serious: No
  Sender: FDA-Public Use
  Company Number: US-KINGPHARMUSA00001-K200700630

PATIENT

DRUGS (1)
  1. ALTACE [Suspect]

REACTIONS (4)
  - ANXIETY [None]
  - DIZZINESS [None]
  - DYSPNOEA [None]
  - MYALGIA [None]
